FAERS Safety Report 5401978-X (Version None)
Quarter: 2007Q3

REPORT INFORMATION
  Report Type: 
  Country: None (occurrence: None)
  Receive Date: 20070727
  Receipt Date: 20070724
  Transmission Date: 20080115
  Serious: Yes (Death)
  Sender: FDA-Public Use
  Company Number: 2007SP014808

PATIENT
  Age: 57 Year
  Sex: Female

DRUGS (2)
  1. TEMOZOLOMIDE [Suspect]
     Indication: GLIOBLASTOMA MULTIFORME
     Dosage: 100 MG; QD; PO : 200 MG; QD; PO
     Route: 048
     Dates: start: 20061006, end: 20061117
  2. TEMOZOLOMIDE [Suspect]
     Indication: GLIOBLASTOMA MULTIFORME
     Dosage: 100 MG; QD; PO : 200 MG; QD; PO
     Route: 048
     Dates: start: 20061219, end: 20061223

REACTIONS (2)
  - HYDROCEPHALUS [None]
  - LYMPHOCYTE COUNT DECREASED [None]
